FAERS Safety Report 8565473-1 (Version None)
Quarter: 2012Q3

REPORT INFORMATION
  Report Type: 
  Country: None (occurrence: None)
  Receive Date: 20120803
  Receipt Date: 20120725
  Transmission Date: 20120928
  Serious: Yes (Hospitalization, Other)
  Sender: FDA-Public Use
  Company Number: CA-ABBOTT-12P-028-0917461-00

PATIENT
  Age: 42 Year
  Sex: Male

DRUGS (9)
  1. ADALIMUMAB [Suspect]
     Indication: COLITIS ULCERATIVE
     Dosage: 1 EVERY 2 WEEKS FOR 2 DOSES
     Route: 058
  2. PROBIOTICA [Suspect]
     Indication: COLITIS ULCERATIVE
  3. PREDNISOLONE [Suspect]
     Indication: COLITIS ULCERATIVE
     Dosage: 10 TO 60 MG ONCE DAILY
     Route: 048
  4. MESALAMINE [Suspect]
  5. REMICADE [Suspect]
     Indication: COLITIS ULCERATIVE
     Route: 042
  6. AZATHIOPRINE SODIUM [Suspect]
     Indication: COLITIS ULCERATIVE
     Dosage: 50 TO 150 MG ONCE DAILY
  7. ADALIMUMAB [Suspect]
     Route: 058
  8. MESALAMINE [Suspect]
     Indication: COLITIS ULCERATIVE
     Route: 048
  9. MESALAMINE [Suspect]

REACTIONS (15)
  - INFLAMMATORY BOWEL DISEASE [None]
  - RENAL TUBULAR NECROSIS [None]
  - SEPSIS [None]
  - BLOOD CREATINE PHOSPHOKINASE INCREASED [None]
  - CONDITION AGGRAVATED [None]
  - NERVOUS SYSTEM DISORDER [None]
  - ASTHENIA [None]
  - COLITIS ULCERATIVE [None]
  - DEEP VEIN THROMBOSIS [None]
  - ENCEPHALITIS VIRAL [None]
  - MYALGIA [None]
  - RENAL FAILURE ACUTE [None]
  - MUSCULAR WEAKNESS [None]
  - GASTROINTESTINAL HAEMORRHAGE [None]
  - TRANSFUSION REACTION [None]
